FAERS Safety Report 18791286 (Version 1)
Quarter: 2021Q1

REPORT INFORMATION
  Report Type: Spontaneous
  Country: US (occurrence: US)
  Receive Date: 20210126
  Receipt Date: 20210126
  Transmission Date: 20210419
  Serious: Yes (Hospitalization)
  Sender: FDA-Public Use
  Company Number: US-PFIZER INC-2021035714

PATIENT
  Sex: Male

DRUGS (2)
  1. CYTOTEC [Suspect]
     Active Substance: MISOPROSTOL
     Indication: PREMATURE DELIVERY
     Dosage: 50 MG
  2. CYTOTEC [Suspect]
     Active Substance: MISOPROSTOL
     Dosage: 100MG EVERY 4 HOURS

REACTIONS (4)
  - Maternal exposure during pregnancy [Unknown]
  - Neonatal dyspnoea [Recovering/Resolving]
  - Premature baby [Recovering/Resolving]
  - Pulmonary oedema neonatal [Recovering/Resolving]
